FAERS Safety Report 9401998 (Version 2)
Quarter: 2013Q3

REPORT INFORMATION
  Report Type: Spontaneous
  Country: US (occurrence: US)
  Receive Date: 20130716
  Receipt Date: 20130806
  Transmission Date: 20140515
  Serious: Yes (Other)
  Sender: FDA-Public Use
  Company Number: US-PFIZER INC-2013203431

PATIENT
  Age: 28 Year
  Sex: Female

DRUGS (2)
  1. CHANTIX [Suspect]
     Dosage: UNK
     Dates: start: 20070403, end: 20080104
  2. NORCO [Concomitant]
     Indication: PAIN
     Dosage: UNK
     Dates: end: 20090220

REACTIONS (1)
  - Suicide attempt [Unknown]
